FAERS Safety Report 11782754 (Version 17)
Quarter: 2022Q3

REPORT INFORMATION
  Report Type: Spontaneous
  Country: US (occurrence: US)
  Receive Date: 20151127
  Receipt Date: 20220816
  Transmission Date: 20221027
  Serious: Yes (Other)
  Sender: FDA-Public Use
  Company Number: US-PFIZER INC-2015406045

PATIENT
  Age: 60 Year
  Sex: Female
  Weight: 81 kg

DRUGS (36)
  1. REVATIO [Suspect]
     Active Substance: SILDENAFIL CITRATE
     Indication: Pulmonary hypertension
     Dosage: 20 MG, 3X/DAY
     Route: 048
     Dates: start: 201311
  2. REVATIO [Suspect]
     Active Substance: SILDENAFIL CITRATE
     Dosage: 20 MG, 3X/DAY
     Route: 048
     Dates: start: 201403
  3. REVATIO [Suspect]
     Active Substance: SILDENAFIL CITRATE
     Dosage: 20 MG, 3X/DAY
     Route: 048
     Dates: start: 2014
  4. REVATIO [Suspect]
     Active Substance: SILDENAFIL CITRATE
     Dosage: 20 MG, 3X/DAY
     Route: 048
     Dates: start: 2014
  5. REVATIO [Suspect]
     Active Substance: SILDENAFIL CITRATE
     Dosage: 20 MG, 3X/DAY
     Route: 048
     Dates: start: 20161207
  6. REVATIO [Suspect]
     Active Substance: SILDENAFIL CITRATE
     Dosage: 40 MG, 3X/DAY (TWO 20 MG TABLETS THREE TIMES A DAY)
     Route: 048
     Dates: start: 201710
  7. REVATIO [Suspect]
     Active Substance: SILDENAFIL CITRATE
     Dosage: 1 TABLET, 3 TIMES A DAY
  8. REVATIO [Suspect]
     Active Substance: SILDENAFIL CITRATE
     Dosage: 40 MG, 3X/DAY (TWO 20MG TABLETS, THREE TIMES A DAY)
     Route: 048
  9. REVATIO [Suspect]
     Active Substance: SILDENAFIL CITRATE
     Dosage: 20 MG, 3X/DAY
  10. REVATIO [Suspect]
     Active Substance: SILDENAFIL CITRATE
     Dosage: 40 MG, 3X/DAY
     Route: 048
  11. REMODULIN [Suspect]
     Active Substance: TREPROSTINIL
     Indication: Pulmonary arterial hypertension
     Dosage: UNK
     Route: 041
     Dates: start: 20211210
  12. REMODULIN [Suspect]
     Active Substance: TREPROSTINIL
     Dosage: 0.025 UG/KG
     Route: 041
  13. REMODULIN [Suspect]
     Active Substance: TREPROSTINIL
     Dosage: UNK
     Route: 041
  14. SPIRONOLACTONE [Concomitant]
     Active Substance: SPIRONOLACTONE
     Indication: Cardiac disorder
     Dosage: 12.5 MG, TWICE DAILY (HALF TABLET IN THE MORNING AND HALF IN THE EVENING)
     Route: 048
     Dates: start: 2014
  15. SPIRONOLACTONE [Concomitant]
     Active Substance: SPIRONOLACTONE
     Indication: Hypertension
     Dosage: HALF OF A 25 MG TABLET, ONCE PER DAY
     Route: 048
     Dates: start: 2014
  16. SPIRONOLACTONE [Concomitant]
     Active Substance: SPIRONOLACTONE
     Indication: Dyspnoea
  17. PRAVASTATIN SODIUM [Concomitant]
     Active Substance: PRAVASTATIN SODIUM
     Indication: Blood cholesterol abnormal
     Dosage: 80 MG, 1X/DAY AT BEDTIME
     Route: 048
     Dates: start: 201510
  18. NEXIUM [Concomitant]
     Active Substance: ESOMEPRAZOLE MAGNESIUM
     Dosage: 40 MG, 1X/DAY
     Route: 048
     Dates: start: 201510, end: 201607
  19. METOPROLOL TARTRATE [Concomitant]
     Active Substance: METOPROLOL TARTRATE
     Indication: Hypertension
     Dosage: 25 MG, DAILY (HALF TABLET IN THE MORNING AND HALF IN THE EVENING)
     Route: 048
  20. METOPROLOL TARTRATE [Concomitant]
     Active Substance: METOPROLOL TARTRATE
     Dosage: HALF OF A 25 MG TABLET,ONCE DAILY
     Route: 048
  21. LEVOTHYROXINE SODIUM [Concomitant]
     Active Substance: LEVOTHYROXINE SODIUM
     Indication: Thyroid disorder
     Dosage: 88 UG, 1X/DAY
     Route: 048
  22. HYDROXYZINE HYDROCHLORIDE [Concomitant]
     Active Substance: HYDROXYZINE HYDROCHLORIDE
     Indication: Pruritus
     Dosage: 25 MG GIVEN 90 A MONTH AS NEEDED FOR ITCHING (MAY TAKE 4 IN ONE DAY AND NONE FOR A FEW DAYS)
     Route: 048
     Dates: start: 2010
  23. NORCO [Concomitant]
     Active Substance: ACETAMINOPHEN\HYDROCODONE BITARTRATE
     Indication: Pain
     Dosage: 10/325 MG, 4X/DAY
     Route: 048
  24. GABAPENTIN [Concomitant]
     Active Substance: GABAPENTIN
     Indication: Neuropathy peripheral
     Dosage: 800 MG, 4X/DAY (ONE TABLET 4 TIMES DAY)
     Route: 048
     Dates: start: 2003
  25. GABAPENTIN [Concomitant]
     Active Substance: GABAPENTIN
     Indication: Pain
  26. GABAPENTIN [Concomitant]
     Active Substance: GABAPENTIN
     Indication: Neuralgia
  27. GABAPENTIN [Concomitant]
     Active Substance: GABAPENTIN
     Indication: Intervertebral disc degeneration
  28. CYCLOBENZAPRINE [Concomitant]
     Active Substance: CYCLOBENZAPRINE
     Indication: Temporomandibular joint syndrome
     Dosage: 10 MG, 3X/DAY
     Route: 048
  29. CITALOPRAM HYDROBROMIDE [Concomitant]
     Active Substance: CITALOPRAM HYDROBROMIDE
     Indication: Depression
     Dosage: 40 MG, 1X/DAY
     Route: 048
  30. ACETAMINOPHEN\HYDROCODONE [Concomitant]
     Active Substance: ACETAMINOPHEN\HYDROCODONE
     Indication: Pain
     Dosage: 1 DF, 4X/DAY[HYDROCODONE BITARTRATE: 10; ACETAMINOPHEN: 325]
     Route: 048
     Dates: start: 2003
  31. ACETAMINOPHEN\HYDROCODONE [Concomitant]
     Active Substance: ACETAMINOPHEN\HYDROCODONE
     Indication: Intervertebral disc degeneration
  32. DIGOXIN [Concomitant]
     Active Substance: DIGOXIN
     Indication: Heart rate abnormal
     Dosage: 0.125 MG, 1X/DAY
     Route: 048
  33. DIGOXIN [Concomitant]
     Active Substance: DIGOXIN
     Indication: Hypertension
  34. LEXAPRO [Concomitant]
     Active Substance: ESCITALOPRAM OXALATE
     Indication: Depression
     Dosage: 40 MG, 1X/DAY
     Route: 048
     Dates: start: 2015
  35. LEXAPRO [Concomitant]
     Active Substance: ESCITALOPRAM OXALATE
     Indication: Anxiety
  36. ESCITALOPRAM [Concomitant]
     Active Substance: ESCITALOPRAM OXALATE
     Indication: Depression
     Dosage: UNK

REACTIONS (30)
  - Pulmonary oedema [Unknown]
  - Product use issue [Unknown]
  - Product dose omission issue [Unknown]
  - Off label use [Unknown]
  - Drug ineffective [Unknown]
  - Intentional product misuse [Unknown]
  - Weight decreased [Unknown]
  - Viral infection [Not Recovered/Not Resolved]
  - Rhinorrhoea [Not Recovered/Not Resolved]
  - Hyperhidrosis [Not Recovered/Not Resolved]
  - Tooth disorder [Unknown]
  - Ear pain [Not Recovered/Not Resolved]
  - Ear discomfort [Not Recovered/Not Resolved]
  - Dyspnoea [Not Recovered/Not Resolved]
  - Nasopharyngitis [Not Recovered/Not Resolved]
  - Sinus disorder [Unknown]
  - Malaise [Unknown]
  - Sinus headache [Unknown]
  - Dry mouth [Unknown]
  - Influenza [Recovering/Resolving]
  - Decreased appetite [Recovering/Resolving]
  - Influenza like illness [Recovering/Resolving]
  - Irritable bowel syndrome [Unknown]
  - Back pain [Unknown]
  - Migraine [Recovering/Resolving]
  - Photophobia [Recovering/Resolving]
  - Memory impairment [Unknown]
  - Insomnia [Unknown]
  - Weight fluctuation [Unknown]
  - Pruritus [Unknown]

NARRATIVE: CASE EVENT DATE: 20150101
